FAERS Safety Report 5871476-8 (Version None)
Quarter: 2008Q3

REPORT INFORMATION
  Report Type: 
  Country: None (occurrence: None)
  Receive Date: 20080905
  Receipt Date: 20080211
  Transmission Date: 20090109
  Serious: No
  Sender: FDA-Public Use
  Company Number: A0708709A

PATIENT
  Age: 64 Year
  Sex: Male

DRUGS (7)
  1. REQUIP [Suspect]
     Indication: RESTLESS LEGS SYNDROME
     Route: 048
     Dates: start: 20060101
  2. LABETALOL HCL [Concomitant]
  3. FLOMAX [Concomitant]
  4. PLAQUENIL [Concomitant]
  5. ASPIRIN [Concomitant]
  6. NEPHPLEX RX [Concomitant]
  7. VITAMIN B3 [Concomitant]

REACTIONS (1)
  - ARTHRALGIA [None]
